FAERS Safety Report 6370492-X (Version None)
Quarter: 2009Q3

REPORT INFORMATION
  Report Type: 
  Country: None (occurrence: None)
  Receive Date: 20090921
  Receipt Date: 20090921
  Transmission Date: 20100115
  Serious: No
  Sender: FDA-Public Use
  Company Number: None

PATIENT
  Age: 86 Year
  Sex: Male
  Weight: 117.93 kg

DRUGS (1)
  1. SERTRALINE HCL [Suspect]
     Indication: DEPRESSION
     Dosage: 50 MG EVER DAY PO
     Route: 048
     Dates: start: 20090409, end: 20090504

REACTIONS (3)
  - HYPERVIGILANCE [None]
  - INSOMNIA [None]
  - NERVOUSNESS [None]
